FAERS Safety Report 17665605 (Version 1)
Quarter: 2020Q2

REPORT INFORMATION
  Report Type: Other
  Country: SI (occurrence: SI)
  Receive Date: 20200414
  Receipt Date: 20200414
  Transmission Date: 20200713
  Serious: Yes (Other)
  Sender: FDA-Public Use
  Company Number: SI-COVIS PHARMA B.V.-2020COV00157

PATIENT
  Age: 72 Year
  Sex: Male

DRUGS (7)
  1. AMLOPIN [AMLODIPINE BESILATE] [Concomitant]
     Active Substance: AMLODIPINE BESYLATE
     Dosage: UNK, DISCONTINUED FOR 14 DAYS
     Dates: end: 202003
  2. ALVESCO [Suspect]
     Active Substance: CICLESONIDE
     Indication: ASTHMA
     Dosage: 160 ?G, 1X/DAY
     Route: 055
     Dates: start: 201911
  3. AMARYL [Concomitant]
     Active Substance: GLIMEPIRIDE
     Indication: DIABETES MELLITUS
     Dosage: 1 DF, 1X/DAY
     Route: 048
  4. MONKASTA [Concomitant]
     Indication: ASTHMA
     Dosage: 1 DF, 1X/DAY
     Route: 048
  5. BILOBIL [Concomitant]
     Active Substance: GINKGO
     Indication: TINNITUS
     Dosage: UNK
     Route: 048
  6. AGLUMIN [Concomitant]
     Indication: DIABETES MELLITUS
     Dosage: 3 DF, 1X/DAY
     Route: 048
  7. TRITAZIDE [Concomitant]
     Active Substance: HYDROCHLOROTHIAZIDE\RAMIPRIL
     Indication: HYPERTENSION
     Dosage: 1 DF, 1X/DAY
     Route: 048

REACTIONS (11)
  - Dysacusis [Not Recovered/Not Resolved]
  - Tinnitus [Not Recovered/Not Resolved]
  - Nightmare [Not Recovered/Not Resolved]
  - Dry throat [Not Recovered/Not Resolved]
  - Nervousness [Not Recovered/Not Resolved]
  - Glaucoma [Not Recovered/Not Resolved]
  - Depression [Not Recovered/Not Resolved]
  - Restlessness [Not Recovered/Not Resolved]
  - Head discomfort [Not Recovered/Not Resolved]
  - Dysphonia [Not Recovered/Not Resolved]
  - Ocular hypertension [Not Recovered/Not Resolved]

NARRATIVE: CASE EVENT DATE: 20200115
